FAERS Safety Report 24766442 (Version 1)
Quarter: 2024Q4

REPORT INFORMATION
  Report Type: Spontaneous
  Country: FR (occurrence: FR)
  Receive Date: 20241223
  Receipt Date: 20241223
  Transmission Date: 20250115
  Serious: Yes (Hospitalization)
  Sender: SANDOZ
  Company Number: None

PATIENT
  Age: 56 Year
  Sex: Male
  Weight: 60 kg

DRUGS (16)
  1. CYCLOSPORINE [Suspect]
     Active Substance: CYCLOSPORINE
     Indication: Prophylaxis against transplant rejection
     Dosage: 240.000MG QD
     Route: 048
     Dates: start: 20231024
  2. CELLCEPT [Suspect]
     Active Substance: MYCOPHENOLATE MOFETIL
     Indication: Prophylaxis against transplant rejection
     Dosage: 2000.000MG QD
     Route: 048
     Dates: start: 20240722
  3. CELLCEPT [Suspect]
     Active Substance: MYCOPHENOLATE MOFETIL
     Dosage: 2500.000MG QD
     Route: 048
     Dates: start: 20231221, end: 20240722
  4. CELLCEPT [Suspect]
     Active Substance: MYCOPHENOLATE MOFETIL
     Dosage: 3000.000MG QD
     Route: 048
     Dates: start: 20231031, end: 20231221
  5. CERTICAN [Suspect]
     Active Substance: EVEROLIMUS
     Dosage: 0.200MG QD
     Route: 048
     Dates: start: 20240722, end: 20240823
  6. CERTICAN [Suspect]
     Active Substance: EVEROLIMUS
     Dosage: 0.400MG QD
     Route: 048
     Dates: start: 20240823, end: 20240923
  7. CERTICAN [Suspect]
     Active Substance: EVEROLIMUS
     Dosage: 0.900MG QD
     Route: 048
     Dates: start: 20240923, end: 20241025
  8. CERTICAN [Suspect]
     Active Substance: EVEROLIMUS
     Indication: Prophylaxis against transplant rejection
     Dosage: 1.000MG QD
     Route: 048
     Dates: start: 20241025, end: 20241120
  9. PREDNISONE [Suspect]
     Active Substance: PREDNISONE
     Dosage: 10.000MG QD
     Route: 048
     Dates: start: 20231221, end: 20240322
  10. PREDNISONE [Suspect]
     Active Substance: PREDNISONE
     Dosage: 20.000MG QD
     Route: 048
     Dates: start: 20231127, end: 20231221
  11. PREDNISONE [Suspect]
     Active Substance: PREDNISONE
     Dosage: 50.000MG QD
     Route: 048
     Dates: start: 20231031, end: 20231127
  12. PREDNISONE [Suspect]
     Active Substance: PREDNISONE
     Indication: Prophylaxis against transplant rejection
     Dosage: 6.000MG QD
     Route: 048
     Dates: start: 20240722
  13. PREDNISONE [Suspect]
     Active Substance: PREDNISONE
     Dosage: 9.000MG QD
     Route: 048
     Dates: start: 20240322, end: 20240722
  14. ATOVAQUONE [Concomitant]
     Active Substance: ATOVAQUONE
     Indication: Opportunistic infection prophylaxis
     Dosage: 1500.000MG QD
     Route: 048
     Dates: start: 20240104
  15. KARDEGIC [Concomitant]
     Active Substance: ASPIRIN DL-LYSINE
     Indication: Heart transplant
     Dosage: 75.000MG QD
     Route: 048
     Dates: start: 20240209
  16. VALGANCICLOVIR [Concomitant]
     Active Substance: VALGANCICLOVIR
     Indication: Opportunistic infection prophylaxis
     Dosage: 450.000MG QD
     Route: 048
     Dates: start: 20231020

REACTIONS (1)
  - Dermo-hypodermitis [Recovering/Resolving]

NARRATIVE: CASE EVENT DATE: 20241109
